FAERS Safety Report 6500164-X (Version None)
Quarter: 2009Q4

REPORT INFORMATION
  Report Type: 
  Country: None (occurrence: None)
  Receive Date: 20091214
  Receipt Date: 20091214
  Transmission Date: 20100525
  Serious: Yes (Other)
  Sender: FDA-Public Use
  Company Number: None

PATIENT
  Sex: Female
  Weight: 72.5755 kg

DRUGS (1)
  1. DILTIAZEM [Suspect]
     Indication: BLOOD PRESSURE
     Dosage: 1 CAP TWICE DAILY MOUTH
     Route: 048
     Dates: start: 20091111, end: 20091112

REACTIONS (7)
  - ABDOMINAL DISCOMFORT [None]
  - CHEST PAIN [None]
  - DIZZINESS [None]
  - DYSSTASIA [None]
  - HEADACHE [None]
  - PALPITATIONS [None]
  - PRODUCT SUBSTITUTION ISSUE [None]
